FAERS Safety Report 6762686-6 (Version None)
Quarter: 2010Q2

REPORT INFORMATION
  Report Type: 
  Country: None (occurrence: None)
  Receive Date: 20100609
  Receipt Date: 20100602
  Transmission Date: 20101027
  Serious: Yes (Hospitalization, Disabling)
  Sender: FDA-Public Use
  Company Number: A0862809A

PATIENT
  Sex: Female
  Weight: 80.5 kg

DRUGS (8)
  1. AVANDIA [Suspect]
     Indication: DIABETES MELLITUS
     Route: 048
     Dates: start: 20020101, end: 20070101
  2. METFORMIN HCL [Concomitant]
  3. ESTRADIOL [Concomitant]
  4. PREVACID [Concomitant]
  5. PRAVACHOL [Concomitant]
  6. WELLBUTRIN [Concomitant]
  7. ZETIA [Concomitant]
  8. ZYRTEC [Concomitant]

REACTIONS (3)
  - AMNESIA [None]
  - CEREBROVASCULAR ACCIDENT [None]
  - FACIAL PALSY [None]
